FAERS Safety Report 19449373 (Version 6)
Quarter: 2021Q4

REPORT INFORMATION
  Report Type: Report from Study
  Country: US (occurrence: US)
  Receive Date: 20210622
  Receipt Date: 20211013
  Transmission Date: 20220303
  Serious: Yes (Hospitalization, Other)
  Sender: FDA-Public Use
  Company Number: US-BAYER-2021-157873

PATIENT
  Age: 66 Year
  Sex: Male

DRUGS (5)
  1. STIVARGA [Suspect]
     Active Substance: REGORAFENIB
     Indication: Gastrointestinal stromal tumour
     Dosage: 80 MG FOR 7 DAYS
     Route: 048
     Dates: start: 20210610, end: 202106
  2. STIVARGA [Suspect]
     Active Substance: REGORAFENIB
     Indication: Hepatic cancer
     Dosage: 120 MG DAILY FOR 7 DAYS
     Route: 048
     Dates: start: 20210616, end: 202106
  3. STIVARGA [Suspect]
     Active Substance: REGORAFENIB
     Indication: Gastrointestinal stromal tumour
     Dosage: 160 MG DAILY FOR 7 DAYS
     Route: 048
     Dates: start: 202106, end: 20210628
  4. STIVARGA [Suspect]
     Active Substance: REGORAFENIB
     Indication: Gastrointestinal stromal tumour
     Dosage: DAILY DOSE 120 MG FOR 21 DAYS ON AND 7 DAYS OFF
     Dates: start: 202107, end: 20210725
  5. STIVARGA [Suspect]
     Active Substance: REGORAFENIB
     Indication: Gastrointestinal stromal tumour
     Dosage: DAILY DOSE 120 MG
     Route: 048
     Dates: start: 202109

REACTIONS (20)
  - Blood pressure fluctuation [Not Recovered/Not Resolved]
  - Abdominal pain upper [Recovering/Resolving]
  - Blood sodium decreased [Recovering/Resolving]
  - Atrial fibrillation [Not Recovered/Not Resolved]
  - Dizziness [Recovering/Resolving]
  - Exercise tolerance decreased [Not Recovered/Not Resolved]
  - Thirst [Not Recovered/Not Resolved]
  - Decreased appetite [Not Recovered/Not Resolved]
  - Weight decreased [Not Recovered/Not Resolved]
  - Dyspnoea [Recovering/Resolving]
  - Heart rate increased [Not Recovered/Not Resolved]
  - Blood pressure increased [Not Recovered/Not Resolved]
  - Diarrhoea [Not Recovered/Not Resolved]
  - Flatulence [Not Recovered/Not Resolved]
  - Dry mouth [Not Recovered/Not Resolved]
  - Back pain [Not Recovered/Not Resolved]
  - Arthralgia [Not Recovered/Not Resolved]
  - Exercise tolerance decreased [Not Recovered/Not Resolved]
  - Product dose omission issue [None]
  - Off label use [Not Recovered/Not Resolved]

NARRATIVE: CASE EVENT DATE: 20210613
